FAERS Safety Report 9617345 (Version 2)
Quarter: 2013Q4

REPORT INFORMATION
  Report Type: Spontaneous
  Country: BG (occurrence: BG)
  Receive Date: 20131011
  Receipt Date: 20131011
  Transmission Date: 20140711
  Serious: Yes (Other)
  Sender: FDA-Public Use
  Company Number: BG-UCBSA-096706

PATIENT
  Sex: Female

DRUGS (3)
  1. KEPPRA [Suspect]
     Indication: EPILEPSY
     Dosage: DOSE: 500 MG IN MORNING AND 1000 MG IN THE EVENING, DRUG STRENGTH: 500 MG
     Route: 048
  2. TRILEPTAL [Concomitant]
     Dosage: DOSE: 2 TABLETS PER DAY (1 IN EVERY 12 HOURS), DRUG STRENGTH: 600 MG TABLET
     Route: 048
  3. TRILEPTAL [Concomitant]
     Dosage: DOSE REDUCED
     Route: 048

REACTIONS (2)
  - Abortion [Recovered/Resolved]
  - Unintended pregnancy [Recovered/Resolved]
